FAERS Safety Report 8425625-8 (Version None)
Quarter: 2012Q2

REPORT INFORMATION
  Report Type: 
  Country: None (occurrence: None)
  Receive Date: 20120611
  Receipt Date: 20120604
  Transmission Date: 20120825
  Serious: Yes (Other)
  Sender: FDA-Public Use
  Company Number: PHHY2012BR048573

PATIENT
  Sex: Female

DRUGS (1)
  1. SANDOSTATIN LAR [Suspect]
     Route: 030

REACTIONS (7)
  - SKIN HYPOPIGMENTATION [None]
  - SOMNOLENCE [None]
  - MALAISE [None]
  - HYPOGLYCAEMIA [None]
  - CARDIAC FAILURE [None]
  - ASTHENIA [None]
  - TREMOR [None]
